FAERS Safety Report 23941348 (Version 1)
Quarter: 2024Q2

REPORT INFORMATION
  Report Type: Spontaneous
  Country: US (occurrence: US)
  Receive Date: 20240605
  Receipt Date: 20240605
  Transmission Date: 20240716
  Serious: No
  Sender: FDA-Public Use
  Company Number: US-ABBVIE-5786156

PATIENT
  Sex: Male

DRUGS (7)
  1. BOTOX COSMETIC [Suspect]
     Active Substance: ONABOTULINUMTOXINA
     Indication: Face lift
     Dosage: TIME INTERVAL: AS NECESSARY: 14 TO 26 UNITS
     Route: 065
  2. BOTOX COSMETIC [Suspect]
     Active Substance: ONABOTULINUMTOXINA
     Indication: Face lift
     Dosage: TIME INTERVAL: AS NECESSARY: 12 TO 20 UNITS
     Route: 065
  3. BOTOX COSMETIC [Suspect]
     Active Substance: ONABOTULINUMTOXINA
     Indication: Face lift
     Dosage: TIME INTERVAL: AS NECESSARY: 12 TO 30 UNITS
     Route: 065
  4. BOTOX COSMETIC [Suspect]
     Active Substance: ONABOTULINUMTOXINA
     Indication: Face lift
     Dosage: TIME INTERVAL: AS NECESSARY: 12 TO 24 UNITS PER SIDE
     Route: 065
  5. BOTOX COSMETIC [Suspect]
     Active Substance: ONABOTULINUMTOXINA
     Indication: Face lift
     Dosage: TIME INTERVAL: AS NECESSARY: 12 TO 20 UNITS
     Route: 065
  6. BOTOX COSMETIC [Suspect]
     Active Substance: ONABOTULINUMTOXINA
     Indication: Face lift
     Dosage: TIME INTERVAL: AS NECESSARY: 12 TO 16 UNITS PER SIDE
     Route: 065
  7. JEUVEAU [Concomitant]
     Active Substance: PRABOTULINUMTOXINA-XVFS
     Indication: Product used for unknown indication

REACTIONS (1)
  - Product use in unapproved indication [Unknown]
